FAERS Safety Report 5954675-6 (Version None)
Quarter: 2008Q4

REPORT INFORMATION
  Report Type: 
  Country: None (occurrence: None)
  Receive Date: 20081117
  Receipt Date: 20081105
  Transmission Date: 20090506
  Serious: Yes (Other)
  Sender: FDA-Public Use
  Company Number: PHHY2008US27382

PATIENT
  Sex: Female

DRUGS (2)
  1. EXJADE [Suspect]
     Indication: MYELODYSPLASTIC SYNDROME
     Dosage: 1375 MG, QD
     Route: 048
     Dates: start: 20081013, end: 20081020
  2. EXJADE [Suspect]
     Indication: IRON OVERLOAD
     Dosage: 1375 MG, QD
     Dates: start: 20081025, end: 20081103

REACTIONS (4)
  - HAEMOGLOBIN ABNORMAL [None]
  - LYMPHOBLAST COUNT INCREASED [None]
  - SERUM FERRITIN INCREASED [None]
  - TREATMENT NONCOMPLIANCE [None]
